FAERS Safety Report 24768821 (Version 1)
Quarter: 2024Q4

REPORT INFORMATION
  Report Type: Spontaneous
  Country: US (occurrence: US)
  Receive Date: 20241224
  Receipt Date: 20241224
  Transmission Date: 20250114
  Serious: No
  Sender: ALEXION PHARMACEUTICALS
  Company Number: US-AstraZeneca-CH-00767571AP

PATIENT

DRUGS (8)
  1. BYDUREON BCISE [Suspect]
     Active Substance: EXENATIDE
     Route: 065
  2. BYDUREON BCISE [Suspect]
     Active Substance: EXENATIDE
     Route: 065
  3. BYDUREON BCISE [Suspect]
     Active Substance: EXENATIDE
     Route: 065
  4. BYDUREON BCISE [Suspect]
     Active Substance: EXENATIDE
     Route: 065
  5. BYETTA [Suspect]
     Active Substance: EXENATIDE
     Route: 065
  6. BYETTA [Suspect]
     Active Substance: EXENATIDE
     Route: 065
  7. BYETTA [Suspect]
     Active Substance: EXENATIDE
     Route: 065
  8. BYETTA [Suspect]
     Active Substance: EXENATIDE
     Route: 065

REACTIONS (5)
  - Drug level changed [Unknown]
  - Insulin therapy [Unknown]
  - Injection site haemorrhage [Unknown]
  - Product use issue [Unknown]
  - Inappropriate schedule of product administration [Unknown]
